FAERS Safety Report 4782608-7 (Version None)
Quarter: 2005Q3

REPORT INFORMATION
  Report Type: 
  Country: None (occurrence: None)
  Receive Date: 20050929
  Receipt Date: 20050422
  Transmission Date: 20060218
  Serious: No
  Sender: FDA-Public Use
  Company Number: 403044

PATIENT
  Age: 54 Year
  Sex: Female

DRUGS (3)
  1. COREG [Suspect]
     Indication: HYPERTENSION
     Dosage: 3.125MG TWICE PER DAY
     Route: 048
     Dates: start: 20050323, end: 20050419
  2. DIAVAN [Concomitant]
  3. GLUCOPHAGE [Concomitant]

REACTIONS (4)
  - DIZZINESS [None]
  - DRY EYE [None]
  - POLLAKIURIA [None]
  - VISION BLURRED [None]
